FAERS Safety Report 9154243 (Version 1)
Quarter: 2013Q1

REPORT INFORMATION
  Report Type: Spontaneous
  Country: US (occurrence: None)
  Receive Date: 20130306
  Receipt Date: 20130306
  Transmission Date: 20140127
  Serious: Yes (Hospitalization)
  Sender: FDA-Public Use
  Company Number: None

PATIENT
  Age: 93 Year
  Sex: Male
  Weight: 78.02 kg

DRUGS (1)
  1. XARELTO 15MG JANSSEN [Suspect]
     Dosage: 15MG BID PO
     Route: 048

REACTIONS (2)
  - Haemoglobin decreased [None]
  - Haemoptysis [None]
